FAERS Safety Report 4369344-6 (Version None)
Quarter: 2004Q2

REPORT INFORMATION
  Report Type: 
  Country: None (occurrence: None)
  Receive Date: 20040527
  Receipt Date: 20040518
  Transmission Date: 20050107
  Serious: No
  Sender: FDA-Public Use
  Company Number: 04H-163-0261619-00

PATIENT

DRUGS (3)
  1. HEPARIN SODIUM [Suspect]
     Indication: PROPHYLAXIS
     Dosage: INTRAVENOUS
     Route: 042
  2. HEPARIN SODIUM [Suspect]
     Indication: RENAL ARTERY THROMBOSIS
     Dosage: INTRAVENOUS
     Route: 042
  3. HEPARIN SODIUM [Suspect]
     Indication: RENAL VEIN THROMBOSIS
     Dosage: INTRAVENOUS
     Route: 042

REACTIONS (1)
  - RENAL VEIN THROMBOSIS [None]
